FAERS Safety Report 17558140 (Version 1)
Quarter: 2020Q1

REPORT INFORMATION
  Report Type: Report from Study
  Country: US (occurrence: US)
  Receive Date: 20200318
  Receipt Date: 20200318
  Transmission Date: 20200409
  Serious: No
  Sender: FDA-Public Use
  Company Number: US-JNJFOC-20200136949

PATIENT
  Sex: Female

DRUGS (3)
  1. BUDESONE [Concomitant]
     Dosage: 3 CAPSULE
     Route: 065
  2. STELARA [Suspect]
     Active Substance: USTEKINUMAB
     Indication: CROHN^S DISEASE
     Route: 058
     Dates: start: 20180621
  3. COLECALCIFEROL [Concomitant]
     Active Substance: CHOLECALCIFEROL
     Route: 065

REACTIONS (13)
  - Weight decreased [Recovering/Resolving]
  - Visual impairment [Recovering/Resolving]
  - Decreased appetite [Recovering/Resolving]
  - Nightmare [Recovering/Resolving]
  - Hepatic steatosis [Recovering/Resolving]
  - Balance disorder [Not Recovered/Not Resolved]
  - Sleep disorder [Recovering/Resolving]
  - Nail disorder [Not Recovered/Not Resolved]
  - Nausea [Not Recovered/Not Resolved]
  - Confusional state [Recovering/Resolving]
  - Contusion [Recovering/Resolving]
  - Amnesia [Not Recovered/Not Resolved]
  - Alopecia [Recovering/Resolving]
